FAERS Safety Report 15745198 (Version 1)
Quarter: 2018Q4

REPORT INFORMATION
  Report Type: Spontaneous
  Country: US (occurrence: US)
  Receive Date: 20181220
  Receipt Date: 20181220
  Transmission Date: 20190205
  Serious: No
  Sender: FDA-Public Use
  Company Number: US-ADAMAS PHARMA, LLC-2018ADA02721

PATIENT
  Age: 79 Year
  Sex: Male
  Weight: 87.53 kg

DRUGS (13)
  1. GOCOVRI [Suspect]
     Active Substance: AMANTADINE
     Indication: PARKINSON^S DISEASE
     Dosage: 274 MG, 1X/DAY AT NIGHT
     Route: 048
     Dates: start: 2018, end: 20181025
  2. RYTARY [Suspect]
     Active Substance: CARBIDOPA\LEVODOPA
     Dosage: 12 TABLETS DAILY
  3. ATORVASTATIN [Concomitant]
     Active Substance: ATORVASTATIN
     Dosage: 40 MG, 1X/DAY
  4. QUETIAPINE. [Concomitant]
     Active Substance: QUETIAPINE
  5. SELEGILINE [Suspect]
     Active Substance: SELEGILINE
     Dosage: 5 MG, 2X/DAY
     Dates: end: 201811
  6. CIALIS [Concomitant]
     Active Substance: TADALAFIL
  7. GOCOVRI [Suspect]
     Active Substance: AMANTADINE
     Dosage: 137 MG, 1X/DAY AT NIGHT
     Dates: start: 20181026, end: 20181027
  8. DONEPEZIL. [Concomitant]
     Active Substance: DONEPEZIL
     Dosage: 5 MG, 2X/DAY
  9. MELATONIN [Concomitant]
     Active Substance: MELATONIN
     Dosage: 10 MG, 1X/DAY AT BEDTIME
  10. AMOXICILLIN. [Concomitant]
     Active Substance: AMOXICILLIN
  11. ASPIRIN. [Concomitant]
     Active Substance: ASPIRIN
  12. ISRADIPINE. [Concomitant]
     Active Substance: ISRADIPINE
     Dosage: 5 MG, 1X/DAY
  13. VITAMIN D3 [Concomitant]
     Active Substance: CHOLECALCIFEROL
     Dosage: 2000 IU, 1X/DAY

REACTIONS (6)
  - Hallucinations, mixed [Recovered/Resolved]
  - Nightmare [Recovered/Resolved]
  - Confusional state [Recovering/Resolving]
  - Fatigue [Recovering/Resolving]
  - Memory impairment [Recovering/Resolving]
  - Somnolence [Recovered/Resolved]

NARRATIVE: CASE EVENT DATE: 2018
